FAERS Safety Report 5348763-5 (Version None)
Quarter: 2007Q2

REPORT INFORMATION
  Report Type: 
  Country: None (occurrence: None)
  Receive Date: 20070606
  Receipt Date: 20070529
  Transmission Date: 20071010
  Serious: Yes (Other)
  Sender: FDA-Public Use
  Company Number: US-PFIZER INC-2007045008

PATIENT
  Age: 58 Year
  Sex: Female

DRUGS (2)
  1. LIPITOR [Suspect]
  2. DRUG, UNSPECIFIED [Concomitant]

REACTIONS (7)
  - ABNORMAL BEHAVIOUR [None]
  - DEHYDRATION [None]
  - FALL [None]
  - HYPERHIDROSIS [None]
  - LOSS OF CONSCIOUSNESS [None]
  - MEMORY IMPAIRMENT [None]
  - SLEEP WALKING [None]
